FAERS Safety Report 6156375-9 (Version None)
Quarter: 2009Q2

REPORT INFORMATION
  Report Type: 
  Country: None (occurrence: None)
  Receive Date: 20090416
  Receipt Date: 20070608
  Transmission Date: 20091009
  Serious: Yes (Hospitalization)
  Sender: FDA-Public Use
  Company Number: US-ASTRAZENECA-2006UW04349

PATIENT
  Age: 19298 Day
  Sex: Female
  Weight: 76.2 kg

DRUGS (32)
  1. SEROQUEL [Suspect]
     Indication: BIPOLAR DISORDER
     Dosage: 100-300 MG DAILY PO
     Route: 048
     Dates: start: 20030524, end: 20051101
  2. SEROQUEL [Suspect]
     Indication: DEPRESSION
     Dosage: 100-300 MG DAILY PO
     Route: 048
     Dates: start: 20030524, end: 20051101
  3. SEROQUEL [Suspect]
     Indication: INSOMNIA
     Dosage: 100-300 MG DAILY PO
     Route: 048
     Dates: start: 20030524, end: 20051101
  4. SEROQUEL [Suspect]
     Route: 048
     Dates: start: 20030510, end: 20051109
  5. SEROQUEL [Suspect]
     Route: 048
     Dates: start: 20030510, end: 20051109
  6. SEROQUEL [Suspect]
     Route: 048
     Dates: start: 20030510, end: 20051109
  7. GLUCOPHAGE [Concomitant]
     Indication: TYPE 2 DIABETES MELLITUS
  8. PROZAC [Concomitant]
  9. CYMBALTA [Concomitant]
  10. LAMICTAL [Concomitant]
  11. KLONAPIN [Concomitant]
  12. ATIVAN [Concomitant]
  13. CONCERTA [Concomitant]
  14. BUSPAR [Concomitant]
  15. TEGROTAL [Concomitant]
  16. PRILOSEC [Concomitant]
  17. TRICOR [Concomitant]
  18. PRAVACHOL [Concomitant]
  19. PROMETRIUM [Concomitant]
  20. ADVIL [Concomitant]
  21. AVANDIA [Concomitant]
  22. CRESTOR [Concomitant]
  23. ESTERASE [Concomitant]
  24. MAALOX [Concomitant]
  25. VICODIN [Concomitant]
  26. TYLENOL [Concomitant]
  27. VAILUM [Concomitant]
  28. ASPIRIN [Concomitant]
  29. PAXIL [Concomitant]
  30. DARVOCET [Concomitant]
  31. FLEXERIL [Concomitant]
  32. DHEA [Concomitant]

REACTIONS (28)
  - ABDOMINAL PAIN [None]
  - ACUTE SINUSITIS [None]
  - BACK PAIN [None]
  - CELLULITIS [None]
  - CONSTIPATION [None]
  - DIABETES MELLITUS [None]
  - EUSTACHIAN TUBE DYSFUNCTION [None]
  - FAECES PALE [None]
  - FATIGUE [None]
  - FIBROCYSTIC BREAST DISEASE [None]
  - GASTROOESOPHAGEAL REFLUX DISEASE [None]
  - HEPATITIS [None]
  - INCREASED TENDENCY TO BRUISE [None]
  - INSOMNIA [None]
  - KIDNEY INFECTION [None]
  - MASTITIS [None]
  - MUSCULOSKELETAL CHEST PAIN [None]
  - OCCULT BLOOD POSITIVE [None]
  - OEDEMA PERIPHERAL [None]
  - OTITIS EXTERNA [None]
  - PAIN IN EXTREMITY [None]
  - PANCREATITIS ACUTE [None]
  - PYREXIA [None]
  - RHINITIS ALLERGIC [None]
  - TENSION HEADACHE [None]
  - URINARY TRACT INFECTION [None]
  - VAGINAL INFECTION [None]
  - VAGINITIS BACTERIAL [None]
